FAERS Safety Report 4355138-4 (Version None)
Quarter: 2004Q2

REPORT INFORMATION
  Report Type: 
  Country: None (occurrence: None)
  Receive Date: 20040504
  Receipt Date: 20040422
  Transmission Date: 20050107
  Serious: Yes (Hospitalization)
  Sender: FDA-Public Use
  Company Number: 2004210507FR

PATIENT
  Age: 46 Year
  Sex: Male
  Weight: 70 kg

DRUGS (4)
  1. SOLU-MEDROL [Suspect]
     Indication: MULTIPLE SCLEROSIS
     Dosage: 1 G, MONTLY, IV
     Route: 042
     Dates: start: 20030910, end: 20040210
  2. DITROPAN [Concomitant]
  3. BACLOFEN [Concomitant]
  4. PERMIXON (SERENOA REPENS) [Concomitant]

REACTIONS (1)
  - ALOPECIA [None]
